FAERS Safety Report 4505179-9 (Version None)
Quarter: 2004Q4

REPORT INFORMATION
  Report Type: 
  Country: None (occurrence: None)
  Receive Date: 20041116
  Receipt Date: 20041108
  Transmission Date: 20050328
  Serious: Yes (Hospitalization)
  Sender: FDA-Public Use
  Company Number: 430068K04USA

PATIENT
  Age: 54 Year
  Sex: Female

DRUGS (6)
  1. NOVANTRONE [Suspect]
     Indication: MULTIPLE SCLEROSIS
     Dates: start: 20040621
  2. AVONEX [Suspect]
  3. SYNTHROID [Concomitant]
  4. PAXIL [Concomitant]
  5. ACCUPRIL [Concomitant]
  6. INSULIN [Concomitant]

REACTIONS (3)
  - BRONCHOPNEUMONIA [None]
  - FEBRILE NEUTROPENIA [None]
  - WHITE BLOOD CELL COUNT DECREASED [None]
